FAERS Safety Report 7805506-0 (Version None)
Quarter: 2011Q4

REPORT INFORMATION
  Report Type: 
  Country: None (occurrence: None)
  Receive Date: 20111010
  Receipt Date: 20111003
  Transmission Date: 20120403
  Serious: Yes (Other)
  Sender: FDA-Public Use
  Company Number: PHHY2011VE88564

PATIENT
  Sex: Female

DRUGS (3)
  1. ZOLEDRONOC ACID [Suspect]
     Indication: OSTEOPOROSIS
     Dosage: 5MG IV ROUTE ONCE A YEAR
     Route: 042
     Dates: start: 20100803
  2. BISOPROLOL FUMARATE [Concomitant]
     Indication: CARDIAC FAILURE
     Dosage: UNK UKN, UNK
  3. CALCIUM CARBONATE [Concomitant]
     Indication: MINERAL SUPPLEMENTATION
     Dosage: 500 MG, UNK
     Route: 048

REACTIONS (2)
  - ARRHYTHMIA [None]
  - INFLUENZA LIKE ILLNESS [None]
